FAERS Safety Report 7935942-3 (Version None)
Quarter: 2011Q4

REPORT INFORMATION
  Report Type: 
  Country: None (occurrence: None)
  Receive Date: 20111123
  Receipt Date: 20111121
  Transmission Date: 20120403
  Serious: Yes (Hospitalization)
  Sender: FDA-Public Use
  Company Number: US-VERTEX PHARMACEUTICALS INC.-AE-2011-003767

PATIENT
  Sex: Female
  Weight: 171 kg

DRUGS (2)
  1. PEGASYS [Concomitant]
     Indication: HEPATITIS C
     Route: 058
     Dates: start: 20110903, end: 20111027
  2. INCIVEK [Suspect]
     Indication: HEPATITIS C
     Route: 048
     Dates: start: 20110903, end: 20111027

REACTIONS (6)
  - BLOOD GLUCOSE INCREASED [None]
  - NAUSEA [None]
  - RASH [None]
  - BLISTER [None]
  - INFLUENZA LIKE ILLNESS [None]
  - VOMITING [None]
